FAERS Safety Report 5046646-1 (Version None)
Quarter: 2006Q3

REPORT INFORMATION
  Report Type: 
  Country: None (occurrence: None)
  Receive Date: 20060710
  Receipt Date: 20060704
  Transmission Date: 20061208
  Serious: Yes (Hospitalization, Other)
  Sender: FDA-Public Use
  Company Number: GB-BRISTOL-MYERS SQUIBB COMPANY-13432349

PATIENT
  Age: 54 Year
  Sex: Female

DRUGS (4)
  1. COAPROVEL TABS 300MG/12.5MG [Suspect]
  2. PARACETAMOL [Suspect]
  3. DIAZEPAM [Suspect]
  4. ALCOHOL [Suspect]

REACTIONS (4)
  - ELECTROCARDIOGRAM ST SEGMENT DEPRESSION [None]
  - HYPOTENSION [None]
  - OVERDOSE [None]
  - SINUS TACHYCARDIA [None]
